FAERS Safety Report 5066729-X (Version None)
Quarter: 2006Q3

REPORT INFORMATION
  Report Type: 
  Country: None (occurrence: None)
  Receive Date: 20060728
  Receipt Date: 20060717
  Transmission Date: 20061208
  Serious: Yes (Hospitalization)
  Sender: FDA-Public Use
  Company Number: 2006-07-1322

PATIENT
  Age: 60 Year
  Sex: Male

DRUGS (1)
  1. INTRON A [Suspect]
     Indication: MALIGNANT MELANOMA
     Dosage: 20 MIU 5XWK INTRAVENOUS
     Route: 042
     Dates: start: 20060710, end: 20060713

REACTIONS (3)
  - DRUG HYPERSENSITIVITY [None]
  - PULMONARY OEDEMA [None]
  - RESPIRATORY DISTRESS [None]
